FAERS Safety Report 8818482 (Version 5)
Quarter: 2013Q3

REPORT INFORMATION
  Report Type: Spontaneous
  Country: US (occurrence: US)
  Receive Date: 20121001
  Receipt Date: 20130711
  Transmission Date: 20140515
  Serious: Yes (Other)
  Sender: FDA-Public Use
  Company Number: US-ELI_LILLY_AND_COMPANY-US201209008171

PATIENT
  Age: 91 Year
  Sex: Female

DRUGS (5)
  1. FORTEO [Suspect]
     Indication: OSTEOPOROSIS
     Dosage: 20 UG, QD
     Dates: start: 201203
  2. FORTEO [Suspect]
     Dosage: 20 UG, QD
     Dates: start: 201203
  3. FORTEO [Suspect]
     Dosage: 20 UG, QD
     Dates: start: 201203
  4. PREDNISONE [Concomitant]
     Indication: TEMPORAL ARTERITIS
     Dosage: UNK
  5. METHOTREXATE [Concomitant]
     Indication: TEMPORAL ARTERITIS
     Dosage: UNK

REACTIONS (5)
  - Neoplasm malignant [Recovered/Resolved]
  - Basal cell carcinoma [Recovered/Resolved]
  - Drug dose omission [Unknown]
  - Fatigue [Unknown]
  - Anxiety [Unknown]
